FAERS Safety Report 7148755-X (Version None)
Quarter: 2010Q4

REPORT INFORMATION
  Report Type: 
  Country: None (occurrence: None)
  Receive Date: 20101209
  Receipt Date: 20101130
  Transmission Date: 20110411
  Serious: Yes (Death)
  Sender: FDA-Public Use
  Company Number: DE-ROCHE-746732

PATIENT
  Age: 74 Year
  Weight: 79 kg

DRUGS (1)
  1. CAPECITABINE [Suspect]
     Route: 065
     Dates: start: 20101109, end: 20101122

REACTIONS (1)
  - DEATH [None]
